FAERS Safety Report 5741949-7 (Version None)
Quarter: 2008Q2

REPORT INFORMATION
  Report Type: 
  Country: None (occurrence: None)
  Receive Date: 20080515
  Receipt Date: 20080501
  Transmission Date: 20081010
  Serious: Yes (Death)
  Sender: FDA-Public Use
  Company Number: US023420

PATIENT
  Age: 57 Year
  Sex: Male

DRUGS (4)
  1. ACTIQ [Suspect]
     Indication: NEOPLASM MALIGNANT
     Dosage: 1200 UG BUCCAL
     Route: 002
     Dates: end: 20080423
  2. FENTANYL TRANSDERMAL SYSTEM [Concomitant]
  3. HYDROMORPHONE HCL [Concomitant]
  4. MORPHINE SULFATE [Concomitant]

REACTIONS (1)
  - MALIGNANT NEOPLASM PROGRESSION [None]
